FAERS Safety Report 18443735 (Version 5)
Quarter: 2021Q4

REPORT INFORMATION
  Report Type: Other
  Country: CA (occurrence: CA)
  Receive Date: 20201029
  Receipt Date: 20211019
  Transmission Date: 20220303
  Serious: Yes (Hospitalization, Other)
  Sender: FDA-Public Use
  Company Number: CA-CELLTRION INC.-2020CA029605

PATIENT

DRUGS (23)
  1. RITUXIMAB [Suspect]
     Active Substance: RITUXIMAB
     Indication: Polychondritis
     Dosage: 1000.0 MG
     Route: 042
  2. MYCOPHENOLATE MOFETIL [Suspect]
     Active Substance: MYCOPHENOLATE MOFETIL
     Indication: Product used for unknown indication
     Route: 065
  3. AMITRIPTYLINE [Concomitant]
     Active Substance: AMITRIPTYLINE
     Dosage: 75.0 MG, 1 EVERY 1 DAYS
     Route: 048
  4. AMLODIPINE [Concomitant]
     Active Substance: AMLODIPINE BESYLATE
     Dosage: 2.5 MG, 1 EVERY 1 DAYS
     Route: 048
  5. AMLODIPINE [Concomitant]
     Active Substance: AMLODIPINE BESYLATE
     Dosage: 2.5 MG, 1 EVERY 1 DAYS
     Route: 065
  6. ATORVASTATIN [Concomitant]
     Active Substance: ATORVASTATIN
     Dosage: 5 MILLIGRAM, 1 EVERY 1 DAY
     Route: 065
  7. FLUTICASONE FUROATE [Concomitant]
     Active Substance: FLUTICASONE FUROATE
     Indication: Hypersensitivity
     Dosage: 55.0 MICROGRAM, 1 EVERY 1 DAYS
     Route: 045
  8. BENADRYL [Concomitant]
     Active Substance: DIPHENHYDRAMINE HYDROCHLORIDE
     Indication: Premedication
     Dosage: 50.0 MG
     Route: 048
  9. BETAHISTINE [Concomitant]
     Active Substance: BETAHISTINE
     Indication: Vertigo
     Dosage: 8.0 MG, 3 EVERY 1 DAYS
     Route: 065
  10. DIMENHYDRINATE [Concomitant]
     Active Substance: DIMENHYDRINATE
     Dosage: 25.0 MILLIGRAM, 1 EVERY 1 DAYS
     Route: 048
  11. FUROSEMIDE [Concomitant]
     Active Substance: FUROSEMIDE
     Indication: Inflammation
     Dosage: 40.0 MG, 1 EVERY 1 DAYS
     Route: 048
  12. GABAPENTIN [Concomitant]
     Active Substance: GABAPENTIN
     Dosage: 600.0 MG, 1 EVERY 1 DAYS
     Route: 048
  13. GRAVOL [Concomitant]
     Active Substance: DIMENHYDRINATE
  14. LAMISIL [Concomitant]
     Active Substance: TERBINAFINE HYDROCHLORIDE
     Dosage: 1.0 PERCENT, 2 EVERY 1 DAYS
     Route: 061
  15. LORAZEPAM [Concomitant]
     Active Substance: LORAZEPAM
     Dosage: 1.0 MG, 1 EVERY 1 DAYS
     Route: 065
  16. METHYLPREDNISOLONE SODIUM SUCCINATE [Concomitant]
     Active Substance: METHYLPREDNISOLONE SODIUM SUCCINATE
     Indication: Premedication
     Dosage: 100.0 MG
     Route: 042
  17. POTASSIUM [Concomitant]
     Active Substance: POTASSIUM
     Dosage: 20.0 MG, 1 EVERY 1 DAYS
     Route: 048
  18. PREDNISONE [Concomitant]
     Active Substance: PREDNISONE
     Dosage: 40.0 MG, 1 EVERY 1 DAYS
     Route: 048
  19. PREDNISONE [Concomitant]
     Active Substance: PREDNISONE
     Dosage: 40.0 MG, 1 EVERY 1 DAYS
     Route: 048
  20. QUETIAPINE [Concomitant]
     Active Substance: QUETIAPINE
     Dosage: 50.0 MG, 2 EVERY 1 DAYS
     Route: 048
  21. SULFASALAZINE [Concomitant]
     Active Substance: SULFASALAZINE
  22. SYNTHROID [Concomitant]
     Active Substance: LEVOTHYROXINE SODIUM
     Dosage: 175 MICROGRAM, 1 EVERY 15 DAYS
     Route: 048
  23. TYLENOL [Concomitant]
     Active Substance: ACETAMINOPHEN
     Indication: Premedication
     Dosage: 650.0 MG
     Route: 048

REACTIONS (17)
  - Blood pressure diastolic abnormal [Recovered/Resolved]
  - Blood pressure systolic abnormal [Recovered/Resolved]
  - Blood pressure systolic increased [Recovered/Resolved]
  - C-reactive protein increased [Recovered/Resolved]
  - Neck injury [Recovered/Resolved]
  - Oxygen saturation decreased [Recovered/Resolved]
  - Tracheal obstruction [Recovered/Resolved]
  - Arthralgia [Recovered/Resolved]
  - Asthma [Recovered/Resolved]
  - Headache [Recovered/Resolved]
  - Heart rate increased [Recovered/Resolved]
  - Infusion related reaction [Recovered/Resolved]
  - Dyspnoea [Recovered/Resolved]
  - Musculoskeletal chest pain [Recovered/Resolved]
  - Nausea [Recovered/Resolved]
  - Off label use [Recovered/Resolved]
  - Off label use [Unknown]
